FAERS Safety Report 4674309-0 (Version None)
Quarter: 2005Q2

REPORT INFORMATION
  Report Type: 
  Country: None (occurrence: None)
  Receive Date: 20050526
  Receipt Date: 20050520
  Transmission Date: 20051028
  Serious: Yes (Hospitalization)
  Sender: FDA-Public Use
  Company Number: 200514592GDDC

PATIENT
  Age: 84 Year
  Sex: 0

DRUGS (11)
  1. FRUSEMIDE [Suspect]
     Dosage: DOSE: 40 MG OM
     Route: 048
     Dates: end: 20050510
  2. IBUPROFEN [Suspect]
     Indication: PAIN
     Route: 048
     Dates: start: 20050506, end: 20050510
  3. BENDROFLUAZIDE [Suspect]
     Indication: HYPERTENSION
     Dosage: DOSE: 2.5 MG OM
     Route: 048
     Dates: end: 20050510
  4. ASPIRIN [Concomitant]
     Route: 048
  5. CALCICHEW D3 [Concomitant]
     Dosage: DOSE: 'FORTE' 2 DAILY
     Route: 048
  6. GABAPENTIN [Concomitant]
     Dosage: DOSE: 300 MG ON
     Route: 048
  7. LOFEPRAMINE [Concomitant]
     Dosage: DOSE: 70 MG ON
     Route: 048
  8. SALMETEROL [Concomitant]
     Route: 055
  9. BECLOMETHASONE DIPROPIONATE [Concomitant]
     Route: 055
  10. LANSOPRAZOLE [Concomitant]
     Route: 048
  11. BETAHISTINE [Concomitant]
     Route: 048

REACTIONS (2)
  - DEHYDRATION [None]
  - RENAL FAILURE ACUTE [None]
